FAERS Safety Report 9107032 (Version 2)
Quarter: 2013Q2

REPORT INFORMATION
  Report Type: Spontaneous
  Country: US (occurrence: US)
  Receive Date: 20130221
  Receipt Date: 20130517
  Transmission Date: 20140414
  Serious: No
  Sender: FDA-Public Use
  Company Number: US-BAYER-2013-021026

PATIENT
  Age: 20 Year
  Sex: Female

DRUGS (1)
  1. MIRENA [Suspect]
     Indication: CONTRACEPTION
     Dosage: 20 ?G/D, CONT
     Route: 015
     Dates: start: 20111109, end: 20130214

REACTIONS (11)
  - Abdominal pain lower [None]
  - Pelvic pain [None]
  - Hypomenorrhoea [None]
  - Abdominal pain lower [None]
  - Abdominal pain lower [None]
  - Headache [None]
  - Visual impairment [None]
  - Breast tenderness [None]
  - Breast pain [None]
  - Abdominal pain upper [None]
  - Back pain [None]
